FAERS Safety Report 7819032-6 (Version None)
Quarter: 2011Q4

REPORT INFORMATION
  Report Type: 
  Country: None (occurrence: None)
  Receive Date: 20111018
  Receipt Date: 20110927
  Transmission Date: 20120403
  Serious: Yes (Death, Hospitalization, Other)
  Sender: FDA-Public Use
  Company Number: US-BAXTER-2009BH011035

PATIENT
  Age: 65 Year
  Sex: Female

DRUGS (16)
  1. HEPARIN SODIUM INJECTION [Suspect]
     Route: 040
     Dates: start: 20080222, end: 20080222
  2. HEPARIN SODIUM INJECTION [Suspect]
     Route: 065
     Dates: start: 20080302
  3. HEPARIN SODIUM INJECTION [Suspect]
     Route: 040
     Dates: start: 20080222, end: 20080222
  4. FUROSEMIDE [Concomitant]
     Indication: PRODUCT USED FOR UNKNOWN INDICATION
     Route: 065
  5. METOPROLOL TARTRATE [Concomitant]
     Indication: PRODUCT USED FOR UNKNOWN INDICATION
     Route: 065
  6. DEXAMETHASONE [Concomitant]
     Indication: PRODUCT USED FOR UNKNOWN INDICATION
     Route: 065
  7. HYDROCODONE BITARTRATE AND ACETAMINOPHEN [Concomitant]
     Indication: PAIN
     Route: 048
  8. METOPROLOL TARTRATE [Concomitant]
     Route: 065
  9. HEPARIN SODIUM INJECTION [Suspect]
     Indication: PULMONARY EMBOLISM
     Route: 058
     Dates: start: 20080218, end: 20080222
  10. METFFORMIN HYDROCHLORIDE [Concomitant]
     Indication: PRODUCT USED FOR UNKNOWN INDICATION
     Route: 065
  11. KLOR-CON [Concomitant]
     Indication: PRODUCT USED FOR UNKNOWN INDICATION
     Route: 065
  12. HEPARIN SODIUM 5,000 UNITS IN DEXTROSE 5% [Suspect]
     Indication: PULMONARY EMBOLISM
     Route: 041
     Dates: start: 20080222, end: 20080301
  13. HEPARIN SODIUM INJECTION [Suspect]
     Indication: THROMBOSIS PROPHYLAXIS
     Route: 058
     Dates: start: 20080218, end: 20080222
  14. HEPARIN SODIUM INJECTION [Suspect]
     Route: 065
     Dates: start: 20080302
  15. AMITRIPTYLINE HCL [Concomitant]
     Indication: PRODUCT USED FOR UNKNOWN INDICATION
     Route: 065
  16. CLINDAMYCIN [Concomitant]
     Indication: PRODUCT USED FOR UNKNOWN INDICATION
     Route: 065

REACTIONS (12)
  - METASTASIS [None]
  - PULMONARY EMBOLISM [None]
  - HEART RATE INCREASED [None]
  - MULTIPLE MYELOMA [None]
  - WEANING FAILURE [None]
  - ABDOMINAL PAIN [None]
  - CHEST PAIN [None]
  - RESPIRATORY FAILURE [None]
  - POST PROCEDURAL HAEMORRHAGE [None]
  - HYPOTENSION [None]
  - CONTUSION [None]
  - BLOOD URINE PRESENT [None]
